FAERS Safety Report 21439293 (Version 1)
Quarter: 2022Q4

REPORT INFORMATION
  Report Type: Spontaneous
  Country: US (occurrence: None)
  Receive Date: 20221008
  Receipt Date: 20221008
  Transmission Date: 20230112
  Serious: Yes (Hospitalization)
  Sender: FDA-Public Use
  Company Number: None

PATIENT
  Sex: Female
  Weight: 66.2 kg

DRUGS (1)
  1. TAXOL [Suspect]
     Active Substance: PACLITAXEL
     Dates: end: 20220927

REACTIONS (7)
  - Flushing [None]
  - Infusion related reaction [None]
  - Chest discomfort [None]
  - Dyspnoea [None]
  - Erythema [None]
  - Tachypnoea [None]
  - Throat tightness [None]

NARRATIVE: CASE EVENT DATE: 20220927
